FAERS Safety Report 14354698 (Version 1)
Quarter: 2018Q1

REPORT INFORMATION
  Report Type: Spontaneous
  Country: US (occurrence: US)
  Receive Date: 20180104
  Receipt Date: 20180104
  Transmission Date: 20180509
  Serious: No
  Sender: FDA-Public Use
  Company Number: None

PATIENT
  Age: 34 Year
  Sex: Female

DRUGS (1)
  1. IBRANCE [Suspect]
     Active Substance: PALBOCICLIB
     Indication: BREAST CANCER FEMALE
     Dosage: TAKE 1 CAP QD X 21 DAYS Q28DAY CYCLES PO
     Route: 048
     Dates: start: 20171205

REACTIONS (1)
  - Headache [None]

NARRATIVE: CASE EVENT DATE: 20171205
